FAERS Safety Report 21975908 (Version 1)
Quarter: 2023Q1

REPORT INFORMATION
  Report Type: Spontaneous
  Country: US (occurrence: US)
  Receive Date: 20230210
  Receipt Date: 20230210
  Transmission Date: 20230418
  Serious: Yes (Hospitalization)
  Sender: FDA-Public Use
  Company Number: US-ChurchDwight-2023-CDW-00244

PATIENT
  Sex: Male

DRUGS (1)
  1. ORAJEL [Suspect]
     Active Substance: ALLANTOIN\BENZOCAINE\CAMPHOR (NATURAL)\DIMETHICONE\MENTHOL
     Indication: Product used for unknown indication
     Route: 048
     Dates: start: 20221105

REACTIONS (1)
  - Coma [Unknown]

NARRATIVE: CASE EVENT DATE: 20221105
